FAERS Safety Report 7709210-9 (Version None)
Quarter: 2011Q3

REPORT INFORMATION
  Report Type: 
  Country: None (occurrence: None)
  Receive Date: 20110825
  Receipt Date: 20110821
  Transmission Date: 20111222
  Serious: Yes (Death)
  Sender: FDA-Public Use
  Company Number: PHHY2011FR75231

PATIENT
  Age: 45 Year
  Sex: Male

DRUGS (2)
  1. EVEROLIMUS [Suspect]
     Indication: PITUITARY TUMOUR
     Dosage: 5 MG, UNK
  2. OCTREOTIDE ACETATE [Suspect]
     Indication: PITUITARY TUMOUR
     Dosage: 30 MG, EVERY 28 DAYS
     Route: 030

REACTIONS (4)
  - DRUG INTOLERANCE [None]
  - DEATH [None]
  - DRUG INEFFECTIVE [None]
  - DIARRHOEA [None]
